FAERS Safety Report 12697895 (Version 1)
Quarter: 2016Q3

REPORT INFORMATION
  Report Type: Spontaneous
  Country: US (occurrence: None)
  Receive Date: 20160829
  Receipt Date: 20160829
  Transmission Date: 20161109
  Serious: Yes (Hospitalization)
  Sender: FDA-Public Use
  Company Number: None

PATIENT
  Age: 79 Year
  Sex: Male
  Weight: 70.7 kg

DRUGS (18)
  1. CALCIUM CARBONATE ANTACID [Concomitant]
  2. CEFUROXIME (CEFTIN) [Concomitant]
  3. INSULIN LISPRO (HUMALOG) [Concomitant]
  4. MIDODRINE (PROAMATINE) [Concomitant]
  5. CHOLECALCIFEROL (VITAMIN D) [Concomitant]
  6. LASIX [Concomitant]
     Active Substance: FUROSEMIDE
  7. LOPERAMIDE (IMODIUM) [Concomitant]
  8. BACITRACIN-POLYMYXIN B (POLYSPORIN) [Concomitant]
  9. ZYRTEC [Concomitant]
     Active Substance: CETIRIZINE HYDROCHLORIDE
  10. SIMETHICONE (DIMETHICONE) [Concomitant]
     Active Substance: DIMETHICONE
  11. WARFARIN [Suspect]
     Active Substance: WARFARIN
     Indication: THROMBOSIS
     Route: 048
  12. NORVASC [Concomitant]
     Active Substance: AMLODIPINE BESYLATE
  13. NITROGLYCERIN (NITROSTAT) [Concomitant]
  14. COUMADIN [Concomitant]
     Active Substance: WARFARIN SODIUM
  15. FLUTICASONE (FLONASE) [Concomitant]
  16. PANTOPRAZOLE (PROTONIX) [Concomitant]
  17. LANTUS [Concomitant]
     Active Substance: INSULIN GLARGINE
  18. SODIUM BICARBONATE. [Concomitant]
     Active Substance: SODIUM BICARBONATE

REACTIONS (5)
  - Haemorrhoids [None]
  - Constipation [None]
  - Rectal haemorrhage [None]
  - Ulcer [None]
  - Haemoglobin decreased [None]

NARRATIVE: CASE EVENT DATE: 20160704
